FAERS Safety Report 19807671 (Version 1)
Quarter: 2021Q3

REPORT INFORMATION
  Report Type: Spontaneous
  Country: US (occurrence: US)
  Receive Date: 20210908
  Receipt Date: 20210908
  Transmission Date: 20211014
  Serious: No
  Sender: FDA-Public Use
  Company Number: None

PATIENT
  Age: 43 Year
  Sex: Female

DRUGS (1)
  1. METHYLPHENIDATE ER [Suspect]
     Active Substance: METHYLPHENIDATE

REACTIONS (5)
  - Disturbance in attention [None]
  - Mood swings [None]
  - Feeling jittery [None]
  - Anxiety [None]
  - Product substitution issue [None]

NARRATIVE: CASE EVENT DATE: 20210816
